FAERS Safety Report 14612659 (Version 1)
Quarter: 2018Q1

REPORT INFORMATION
  Report Type: Spontaneous
  Country: FR (occurrence: FR)
  Receive Date: 20180308
  Receipt Date: 20180308
  Transmission Date: 20180509
  Serious: Yes (Congenital Anomaly)
  Sender: FDA-Public Use
  Company Number: FR-GLAXOSMITHKLINE-FR2018036874

PATIENT
  Age: 12 Year
  Sex: Female

DRUGS (3)
  1. GARDENAL [Suspect]
     Active Substance: PHENOBARBITAL
     Indication: EPILEPSY
     Dosage: 50 MG, QD
     Route: 064
     Dates: start: 2005, end: 20051013
  2. LAMICTAL [Suspect]
     Active Substance: LAMOTRIGINE
     Indication: EPILEPSY
     Dosage: 400 MG, QD
     Route: 064
     Dates: start: 2005, end: 20051013
  3. SPECIAFOLDINE [Suspect]
     Active Substance: FOLIC ACID
     Indication: PRODUCT USED FOR UNKNOWN INDICATION
     Dosage: UNK
     Route: 064

REACTIONS (4)
  - Fine motor delay [Not Recovered/Not Resolved]
  - Learning disorder [Not Recovered/Not Resolved]
  - Foetal exposure during pregnancy [Unknown]
  - Language disorder [Not Recovered/Not Resolved]
